FAERS Safety Report 10094051 (Version 1)
Quarter: 2014Q2

REPORT INFORMATION
  Report Type: Spontaneous
  Country: GB (occurrence: GB)
  Receive Date: 20140422
  Receipt Date: 20140422
  Transmission Date: 20141212
  Serious: Yes (Other)
  Sender: FDA-Public Use
  Company Number: GB-PFIZER INC-2014105938

PATIENT
  Age: 51 Year
  Sex: Female
  Weight: 71 kg

DRUGS (4)
  1. TRANEXAMIC ACID [Suspect]
     Indication: MENORRHAGIA
     Dosage: 2 X 500MG, THREE TIMES DAILY AT TIME OF PERIOD.
     Route: 048
     Dates: start: 20130522, end: 20140327
  2. MEFENAMIC ACID [Suspect]
     Indication: MENORRHAGIA
     Dosage: 500MG THREE TIMES DAILY WHEN PERIOD STARTS.
     Route: 048
     Dates: start: 20130522, end: 20140327
  3. ACICLOVIR [Concomitant]
     Indication: HERPES SIMPLEX
     Dosage: 200 MG, UNK
     Route: 048
     Dates: start: 20140218, end: 20140223
  4. DOXYCYCLINE [Concomitant]
     Dosage: 2 ON THE FIRST DAY,  THEN DAILY.
     Route: 048
     Dates: start: 20140127, end: 20140224

REACTIONS (8)
  - Rash macular [Recovered/Resolved]
  - Erythema [Recovered/Resolved]
  - Mouth ulceration [Recovered/Resolved]
  - Eye ulcer [Recovered/Resolved]
  - Lip ulceration [Recovered/Resolved]
  - Skin lesion [Recovered/Resolved]
  - Lichen sclerosus [Recovered/Resolved]
  - Condition aggravated [Recovered/Resolved]
